FAERS Safety Report 7372045-3 (Version None)
Quarter: 2011Q1

REPORT INFORMATION
  Report Type: 
  Country: None (occurrence: None)
  Receive Date: 20110324
  Receipt Date: 20110216
  Transmission Date: 20110831
  Serious: Yes (Death, Hospitalization)
  Sender: FDA-Public Use
  Company Number: PHHY2011US14137

PATIENT
  Sex: Male

DRUGS (8)
  1. NORVASC [Concomitant]
     Dosage: UNK
  2. PROGRAF [Concomitant]
     Dosage: UNK
  3. ATENOLOL [Concomitant]
     Dosage: UNK
  4. MYFORTIC [Suspect]
     Dosage: 720 MG, BID
     Route: 048
     Dates: start: 20100218, end: 20110311
  5. ZOLOFT [Concomitant]
     Dosage: UNK
  6. MYFORTIC [Suspect]
     Indication: RENAL TRANSPLANT
     Dosage: 360 MG, BID
     Route: 048
  7. SENSIPAR [Concomitant]
     Dosage: UNK
  8. CALCITRIOL [Concomitant]

REACTIONS (2)
  - RENAL FAILURE ACUTE [None]
  - DEATH [None]
